FAERS Safety Report 11862074 (Version 2)
Quarter: 2016Q1

REPORT INFORMATION
  Report Type: Spontaneous
  Country: BR (occurrence: BR)
  Receive Date: 20151222
  Receipt Date: 20160113
  Transmission Date: 20160526
  Serious: Yes (Other)
  Sender: FDA-Public Use
  Company Number: BR-GILEAD-2015-0184518

PATIENT
  Age: 63 Year

DRUGS (6)
  1. DAKLINZA [Suspect]
     Active Substance: DACLATASVIR
     Indication: HEPATITIS C
     Dosage: 60 MG, UNK
     Route: 065
     Dates: start: 20151104
  2. RIBAVIRIN. [Concomitant]
     Active Substance: RIBAVIRIN
     Dosage: UNK
     Dates: start: 20151118
  3. BOCEPREVIR [Concomitant]
     Active Substance: BOCEPREVIR
     Dosage: UNK
     Dates: start: 20120713
  4. SOVALDI [Suspect]
     Active Substance: SOFOSBUVIR
     Indication: HEPATITIS C
     Dosage: 400 MG, UNK
     Route: 065
     Dates: start: 20151104
  5. RIBAVIRIN. [Concomitant]
     Active Substance: RIBAVIRIN
     Dosage: UNK
     Dates: start: 20120713
  6. PEG                                /01543001/ [Concomitant]
     Active Substance: PEGINTERFERON ALFA-2B
     Dosage: UNK
     Dates: start: 20120713

REACTIONS (11)
  - Odynophagia [Recovering/Resolving]
  - Asthenia [Recovered/Resolved]
  - Fatigue [Recovered/Resolved]
  - Erythema multiforme [Recovering/Resolving]
  - Pain in extremity [Not Recovered/Not Resolved]
  - Rash generalised [Recovering/Resolving]
  - Headache [Recovering/Resolving]
  - Dizziness [Recovered/Resolved]
  - Haematuria [Unknown]
  - Pyrexia [Recovering/Resolving]
  - Cough [Recovering/Resolving]

NARRATIVE: CASE EVENT DATE: 20151106
